FAERS Safety Report 5940907-7 (Version None)
Quarter: 2008Q4

REPORT INFORMATION
  Report Type: 
  Country: None (occurrence: None)
  Receive Date: 20081104
  Receipt Date: 20081022
  Transmission Date: 20090506
  Serious: Yes (Hospitalization)
  Sender: FDA-Public Use
  Company Number: US-ELI_LILLY_AND_COMPANY-US200810005651

PATIENT
  Age: 60 Year
  Sex: Female
  Weight: 83.447 kg

DRUGS (1)
  1. BYETTA [Suspect]
     Dosage: 10 UG, 2/D
     Route: 058
     Dates: start: 20050501, end: 20080725

REACTIONS (1)
  - HOSPITALISATION [None]
